FAERS Safety Report 5231184-3 (Version None)
Quarter: 2007Q1

REPORT INFORMATION
  Report Type: 
  Country: None (occurrence: None)
  Receive Date: 20070205
  Receipt Date: 20070205
  Transmission Date: 20070707
  Serious: Yes (Hospitalization)
  Sender: FDA-Public Use
  Company Number: None

PATIENT
  Sex: Male
  Weight: 103 kg

DRUGS (3)
  1. ZIPRASIDONE HCL [Suspect]
     Indication: SCHIZOPHRENIA, PARANOID TYPE
     Dosage: 20 MG THEN 40 MG Q AM PO
     Route: 048
     Dates: start: 20060724, end: 20060809
  2. ZIPRASIDONE HCL [Suspect]
     Indication: SCHIZOPHRENIA, PARANOID TYPE
     Dosage: 20 MG THEN 40 MG Q AM PO
     Route: 048
     Dates: start: 20060810
  3. LISINOPRIL [Suspect]
     Indication: BLOOD PRESSURE
     Dosage: 40 MG Q DAY PO
     Route: 048
     Dates: start: 20041119, end: 20060920

REACTIONS (3)
  - DYSPHONIA [None]
  - LIP SWELLING [None]
  - NAUSEA [None]
